FAERS Safety Report 14162236 (Version 1)
Quarter: 2017Q4

REPORT INFORMATION
  Report Type: Spontaneous
  Country: US (occurrence: US)
  Receive Date: 20171106
  Receipt Date: 20171106
  Transmission Date: 20180321
  Serious: No
  Sender: FDA-Public Use
  Company Number: US-ASTRAZENECA-2017SF02875

PATIENT
  Age: 24653 Day
  Sex: Female

DRUGS (4)
  1. LUMIGAN [Concomitant]
     Active Substance: BIMATOPROST
     Indication: GLAUCOMA
  2. ARIMIDEX [Suspect]
     Active Substance: ANASTROZOLE
     Indication: BREAST CANCER STAGE IV
     Dosage: 1 MG, AT NIGHT, GENERIC
     Route: 048
     Dates: start: 20170912
  3. ARIMIDEX [Suspect]
     Active Substance: ANASTROZOLE
     Indication: MASTECTOMY
     Dosage: 1 MG, AT NIGHT, GENERIC
     Route: 048
     Dates: start: 20170912
  4. SYNTHROID [Concomitant]
     Active Substance: LEVOTHYROXINE SODIUM
     Indication: HYPOTHYROIDISM

REACTIONS (10)
  - Dysphonia [Unknown]
  - Dry throat [Unknown]
  - Rash macular [Unknown]
  - Tinea infection [Unknown]
  - Lip swelling [Unknown]
  - Paraesthesia oral [Unknown]
  - Eosinophilia [Unknown]
  - Neck pain [Unknown]
  - Hypoaesthesia [Unknown]
  - Urticaria [Unknown]

NARRATIVE: CASE EVENT DATE: 20171009
